FAERS Safety Report 22655436 (Version 1)
Quarter: 2023Q2

REPORT INFORMATION
  Report Type: Spontaneous
  Country: US (occurrence: None)
  Receive Date: 20230629
  Receipt Date: 20230629
  Transmission Date: 20230722
  Serious: No
  Sender: FDA-Public Use
  Company Number: None

PATIENT
  Sex: Female

DRUGS (1)
  1. AMBRISENTAN [Suspect]
     Active Substance: AMBRISENTAN
     Indication: Pulmonary arterial hypertension
     Dosage: FREQUENCY : DAILY;?
     Route: 048

REACTIONS (9)
  - Fatigue [None]
  - Dyspnoea [None]
  - Dizziness [None]
  - Cough [None]
  - Arthritis [None]
  - Chest discomfort [None]
  - Loss of personal independence in daily activities [None]
  - Anxiety [None]
  - Limb discomfort [None]
